FAERS Safety Report 14055753 (Version 1)
Quarter: 2017Q4

REPORT INFORMATION
  Report Type: Spontaneous
  Country: JP (occurrence: JP)
  Receive Date: 20171006
  Receipt Date: 20171006
  Transmission Date: 20180321
  Serious: Yes (Death)
  Sender: FDA-Public Use
  Company Number: JP-MITSUBISHI TANABE PHARMA CORPORATION-MTPC2017-0018069

PATIENT
  Age: 88 Year
  Sex: Female
  Weight: 45 kg

DRUGS (10)
  1. ANEXATE [Concomitant]
     Active Substance: FLUMAZENIL
     Route: 042
     Dates: start: 20160706, end: 20160706
  2. LANSOPRAZOLE OD [Concomitant]
     Active Substance: LANSOPRAZOLE
     Route: 048
     Dates: end: 20160706
  3. GRTPA [Suspect]
     Active Substance: ALTEPLASE
     Indication: CEREBRAL INFARCTION
     Route: 042
     Dates: start: 20160706, end: 20160706
  4. BAYASPIRIN [Suspect]
     Active Substance: ASPIRIN
     Indication: HYPERTENSION
     Route: 048
     Dates: end: 20160706
  5. MICARDIS [Concomitant]
     Active Substance: TELMISARTAN
     Route: 048
     Dates: end: 20160706
  6. NICARDIPINE HYDROCHLORIDE. [Concomitant]
     Active Substance: NICARDIPINE HYDROCHLORIDE
     Route: 041
     Dates: start: 20160706, end: 20160707
  7. RADICUT [Suspect]
     Active Substance: EDARAVONE
     Route: 041
     Dates: start: 20160706, end: 20160707
  8. TAKEPRON [Concomitant]
     Active Substance: LANSOPRAZOLE
     Route: 042
     Dates: start: 20160706, end: 20160706
  9. CERCINE [Concomitant]
     Active Substance: DIAZEPAM
     Route: 042
     Dates: start: 20160706, end: 20160706
  10. OMEPRAL [Concomitant]
     Active Substance: OMEPRAZOLE
     Route: 042
     Dates: start: 20160707, end: 20160707

REACTIONS (1)
  - Cerebral haemorrhage [Fatal]

NARRATIVE: CASE EVENT DATE: 20160706
